FAERS Safety Report 7616724-9 (Version None)
Quarter: 2011Q3

REPORT INFORMATION
  Report Type: 
  Country: None (occurrence: None)
  Receive Date: 20110718
  Receipt Date: 20110708
  Transmission Date: 20111222
  Serious: Yes (Hospitalization)
  Sender: FDA-Public Use
  Company Number: US-BIOGENIDEC-2011BI011813

PATIENT
  Age: 51 Year
  Sex: Female

DRUGS (2)
  1. TYSABRI [Suspect]
     Indication: MULTIPLE SCLEROSIS
     Route: 042
     Dates: start: 20081105
  2. AMPYRA [Concomitant]
     Dates: start: 20090101, end: 20110601

REACTIONS (9)
  - MULTIPLE SCLEROSIS [None]
  - CYSTITIS [None]
  - DEPRESSION [None]
  - URINARY TRACT INFECTION [None]
  - UROSEPSIS [None]
  - FAECAL INCONTINENCE [None]
  - BALANCE DISORDER [None]
  - FALL [None]
  - DYSSTASIA [None]
